FAERS Safety Report 14335405 (Version 1)
Quarter: 2017Q4

REPORT INFORMATION
  Report Type: Spontaneous
  Country: US (occurrence: US)
  Receive Date: 20171229
  Receipt Date: 20171229
  Transmission Date: 20180321
  Serious: Yes (Other)
  Sender: FDA-Public Use
  Company Number: US-009507513-1712USA010771

PATIENT
  Age: 53 Year
  Sex: Male

DRUGS (6)
  1. ASPIRIN. [Suspect]
     Active Substance: ASPIRIN
     Indication: PROPHYLAXIS
     Dosage: 81 MG, QD
  2. TICAGRELOR. [Suspect]
     Active Substance: TICAGRELOR
     Indication: PROPHYLAXIS
     Dosage: 160 MG, LOADING DOSE VIA GASTRIC TUBE
     Route: 048
  3. INTEGRILIN [Suspect]
     Active Substance: EPTIFIBATIDE
     Indication: ANTIPLATELET THERAPY
     Dosage: 60 U/KG BOLUS
     Route: 042
  4. INTEGRILIN [Suspect]
     Active Substance: EPTIFIBATIDE
     Dosage: 2 MICROGRAM/KILOGRAM/MIN INFUSION
  5. INTEGRILIN [Suspect]
     Active Substance: EPTIFIBATIDE
     Dosage: 1 MICROGRAM/KG/MIN
  6. HEPARIN [Suspect]
     Active Substance: HEPARIN SODIUM
     Indication: ANTICOAGULANT THERAPY
     Dosage: 5000 U BOLUS

REACTIONS (2)
  - Pulmonary haemorrhage [Recovered/Resolved]
  - Contraindicated product administered [Unknown]
